APPROVED DRUG PRODUCT: MAXIDEX
Active Ingredient: DEXAMETHASONE SODIUM PHOSPHATE
Strength: EQ 0.05% PHOSPHATE
Dosage Form/Route: OINTMENT;OPHTHALMIC
Application: A083342 | Product #001
Applicant: ALCON LABORATORIES INC
Approved: Approved Prior to Jan 1, 1982 | RLD: No | RS: No | Type: DISCN